FAERS Safety Report 8936722 (Version 1)
Quarter: 2012Q4

REPORT INFORMATION
  Report Type: 
  Country: DE (occurrence: DE)
  Receive Date: 20121130
  Receipt Date: 20121130
  Transmission Date: 20130627
  Serious: Yes (Death)
  Sender: FDA-Public Use
  Company Number: DE-B.I. PHARMACEUTICALS,INC./RIDGEFIELD-2012-DE-02857DE

PATIENT
  Age: 86 Year
  Sex: Male

DRUGS (5)
  1. PRADAXA [Suspect]
     Indication: ATRIAL FIBRILLATION
     Dosage: 220 mg
     Route: 048
     Dates: start: 201112, end: 20120403
  2. GODAMED [Concomitant]
     Indication: CAROTID ARTERY STENOSIS
     Dosage: 100 mg
     Route: 048
     Dates: end: 20120403
  3. RAMIPRIL /HCT [Concomitant]
     Indication: HYPERTONIA
     Dosage: daily dose: 5 mg / 25 mg
     Route: 048
     Dates: start: 2012, end: 20120403
  4. L-THYROXIN [Concomitant]
     Indication: HYPOTHYROIDISM
     Dosage: 125 mcg
     Route: 048
     Dates: end: 20120403
  5. MEMANTIN [Concomitant]
     Indication: DEMENTIA
     Dosage: 20 mg
     Route: 048
     Dates: start: 2012, end: 20120403

REACTIONS (2)
  - Cerebral haemorrhage [Fatal]
  - Cerebral decompression [Fatal]
